FAERS Safety Report 7443314-3 (Version None)
Quarter: 2011Q2

REPORT INFORMATION
  Report Type: 
  Country: None (occurrence: None)
  Receive Date: 20110428
  Receipt Date: 20110425
  Transmission Date: 20111010
  Serious: Yes (Other)
  Sender: FDA-Public Use
  Company Number: US-ABBOTT-11P-163-0721473-00

PATIENT
  Sex: Female

DRUGS (11)
  1. HUMIRA [Suspect]
     Route: 058
     Dates: start: 20090301
  2. METHOTREXATE [Concomitant]
     Indication: ARTHRITIS
     Route: 048
     Dates: start: 20100101
  3. TETRACYCLINE [Suspect]
     Indication: ACNE
     Dates: start: 20100201
  4. PREDNISONE [Concomitant]
     Indication: ARTHRITIS
     Route: 048
     Dates: start: 20070101, end: 20100101
  5. FOLIC ACID [Concomitant]
     Indication: VITAMIN SUPPLEMENTATION
  6. CEPHALEXIN [Suspect]
     Indication: ANTIBIOTIC PROPHYLAXIS
     Route: 048
     Dates: start: 20100101
  7. HUMIRA [Suspect]
     Indication: ARTHRITIS
     Route: 058
     Dates: start: 20080901, end: 20090301
  8. FELDANE [Concomitant]
     Indication: RHEUMATOID ARTHRITIS
  9. PREDNISONE [Concomitant]
     Dosage: TAPER
     Route: 048
     Dates: start: 20110201
  10. METHOTREXATE [Concomitant]
     Indication: RHEUMATOID ARTHRITIS
  11. MACRODANTIN [Suspect]
     Indication: CYSTITIS
     Dosage: UNKNOWN STRENGTH
     Route: 048
     Dates: start: 20090101

REACTIONS (13)
  - ERYTHEMA [None]
  - PRURITUS [None]
  - TACHYCARDIA [None]
  - ACNE [None]
  - CYSTITIS [None]
  - VITAMIN D DECREASED [None]
  - HYPERSENSITIVITY [None]
  - DRUG INEFFECTIVE [None]
  - ARTHRITIS [None]
  - OEDEMA PERIPHERAL [None]
  - SINUSITIS [None]
  - DYSPNOEA [None]
  - WEIGHT INCREASED [None]
